FAERS Safety Report 7797782-8 (Version None)
Quarter: 2011Q4

REPORT INFORMATION
  Report Type: 
  Country: None (occurrence: None)
  Receive Date: 20111004
  Receipt Date: 20111004
  Transmission Date: 20120403
  Serious: Yes (Other)
  Sender: FDA-Public Use
  Company Number: None

PATIENT
  Age: 49 Year
  Sex: Female
  Weight: 63.5036 kg

DRUGS (1)
  1. LISTERINE WHITENING PRE-BRUSH RINSE CLEAN MINT (ORAL CARE PRODUCTS) OR [Suspect]
     Indication: DENTAL CARE
     Dosage: ONE HALF CAPFUL. TWICE IN A ROW. 2 DAYS IN A ROW. ORAL
     Route: 048

REACTIONS (6)
  - OROPHARYNGEAL BLISTERING [None]
  - THERMAL BURN [None]
  - LIP SWELLING [None]
  - LIP BLISTER [None]
  - WRONG TECHNIQUE IN DRUG USAGE PROCESS [None]
  - LIP DISORDER [None]
